FAERS Safety Report 12133511 (Version 3)
Quarter: 2016Q3

REPORT INFORMATION
  Report Type: Spontaneous
  Country: FR (occurrence: FR)
  Receive Date: 20160301
  Receipt Date: 20160705
  Transmission Date: 20161109
  Serious: Yes (Hospitalization)
  Sender: FDA-Public Use
  Company Number: FR-PFIZER INC-2016120893

PATIENT
  Age: 81 Year
  Sex: Female

DRUGS (21)
  1. PANTOPRAZOLE [Suspect]
     Active Substance: PANTOPRAZOLE SODIUM
     Dosage: 8 MG/HOUR
     Route: 042
     Dates: start: 20151027, end: 20151030
  2. TARDYFERON [Concomitant]
     Active Substance: FERROUS SULFATE
     Dosage: 1 DF, DAILY
     Dates: start: 20151021
  3. MOTILIUM [Suspect]
     Active Substance: DOMPERIDONE
     Indication: NAUSEA
     Dosage: 10 MG, 3X/DAY
     Dates: start: 20151023, end: 20151113
  4. PANTOPRAZOLE [Suspect]
     Active Substance: PANTOPRAZOLE SODIUM
     Dosage: 40 MG, 2X/DAY
     Route: 042
     Dates: start: 20151030, end: 20151102
  5. RIFAMPICIN [Concomitant]
     Active Substance: RIFAMPIN
     Dosage: 900 MG, DAILY
     Dates: start: 20151021, end: 20151021
  6. VITAMIN C [Concomitant]
     Active Substance: ASCORBIC ACID
     Dosage: 1 G, DAILY
  7. FRAGMINE [Suspect]
     Active Substance: DALTEPARIN SODIUM
     Dosage: 1 UNK, UNK
     Route: 058
     Dates: start: 20151030, end: 20151103
  8. VITAMIN K1 [Concomitant]
     Active Substance: PHYTONADIONE
     Dosage: 10 MG, UNK
     Dates: start: 20151022
  9. ONDANSETRON [Suspect]
     Active Substance: ONDANSETRON
     Indication: NAUSEA
     Dosage: 1 DF, DAILY, IF NEEDED
     Dates: start: 20151021, end: 20151023
  10. RIFAMPICIN [Concomitant]
     Active Substance: RIFAMPIN
     Dosage: 900 MG, DAILY
     Dates: start: 20151023, end: 20151027
  11. FRAGMINE [Suspect]
     Active Substance: DALTEPARIN SODIUM
     Indication: THROMBOPHLEBITIS
     Dosage: 1 DF, 1X/DAY
     Route: 058
     Dates: start: 20151028, end: 20151028
  12. BACTRIM [Concomitant]
     Active Substance: SULFAMETHOXAZOLE\TRIMETHOPRIM
     Dosage: 4 DF, DAILY
     Dates: start: 20151021, end: 20151027
  13. VITAMIN K1 [Concomitant]
     Active Substance: PHYTONADIONE
     Dosage: 10 MG, UNK
     Dates: start: 20151112, end: 20151113
  14. INEXIUM /01479302/ [Suspect]
     Active Substance: ESOMEPRAZOLE MAGNESIUM
     Indication: GASTRODUODENAL ULCER
     Dosage: 40 MG, 2X/DAY
     Route: 048
     Dates: start: 20151103, end: 20151109
  15. PANTOPRAZOLE [Suspect]
     Active Substance: PANTOPRAZOLE SODIUM
     Indication: GASTRODUODENAL ULCER
     Dosage: 8 MG/HOUR
     Route: 042
     Dates: start: 20151022
  16. POLYIONIQUE G5 [Suspect]
     Active Substance: DEXTROSE\POTASSIUM CHLORIDE\SODIUM CHLORIDE
     Indication: ABDOMINAL CAVITY DRAINAGE
     Dosage: 1 DF, 1X/DAY
     Route: 042
     Dates: start: 20151022, end: 20151024
  17. POLYIONIQUE G5 [Suspect]
     Active Substance: DEXTROSE\POTASSIUM CHLORIDE\SODIUM CHLORIDE
     Dosage: 500 ML, UNK
     Dates: start: 20151028, end: 20151103
  18. PANTOPRAZOLE [Suspect]
     Active Substance: PANTOPRAZOLE SODIUM
     Dosage: 40 MG, 2X/DAY
     Route: 042
     Dates: start: 20151024
  19. SETOFILM [Suspect]
     Active Substance: ONDANSETRON
     Dosage: 4 MG, 2X/DAY
     Dates: start: 20151023, end: 20151103
  20. BACTRIM [Concomitant]
     Active Substance: SULFAMETHOXAZOLE\TRIMETHOPRIM
     Dosage: UNK
  21. DOLIPRANE [Concomitant]
     Active Substance: ACETAMINOPHEN
     Dosage: 1 G, 3X/DAY
     Dates: start: 20151021

REACTIONS (1)
  - Neutropenia [Recovering/Resolving]

NARRATIVE: CASE EVENT DATE: 20151102
